FAERS Safety Report 12920287 (Version 1)
Quarter: 2016Q4

REPORT INFORMATION
  Report Type: Spontaneous
  Country: US (occurrence: US)
  Receive Date: 20161105
  Receipt Date: 20161105
  Transmission Date: 20170207
  Serious: Yes (Other)
  Sender: FDA-Public Use
  Company Number: None

PATIENT
  Age: 48 Year
  Sex: Female
  Weight: 90.45 kg

DRUGS (8)
  1. LEVOFLOXACIN 500MG TABS #10 [Suspect]
     Active Substance: LEVOFLOXACIN
     Indication: SINUSITIS
     Dosage: ?          QUANTITY:10 TABLET(S);?
     Route: 048
     Dates: start: 20161019, end: 20161028
  2. NASACORT [Concomitant]
     Active Substance: TRIAMCINOLONE ACETONIDE
  3. ESTROVEN [Concomitant]
     Active Substance: DIETARY SUPPLEMENT
  4. CLARITIN-D 12 HOUR [Concomitant]
     Active Substance: LORATADINE\PSEUDOEPHEDRINE SULFATE
  5. MULTIPLE VITAMIN [Concomitant]
     Active Substance: VITAMINS
  6. CRANBERRY TABLETS [Concomitant]
  7. VITAMIN C [Concomitant]
     Active Substance: ASCORBIC ACID
  8. VITAMIN D3 [Concomitant]
     Active Substance: CHOLECALCIFEROL

REACTIONS (5)
  - Flank pain [None]
  - Arthralgia [None]
  - Crepitations [None]
  - Tendonitis [None]
  - Nervousness [None]

NARRATIVE: CASE EVENT DATE: 20161105
